FAERS Safety Report 9540903 (Version 2)
Quarter: 2014Q1

REPORT INFORMATION
  Report Type: Spontaneous
  Country: IT (occurrence: IT)
  Receive Date: 20130921
  Receipt Date: 20140328
  Transmission Date: 20141002
  Serious: Yes (Hospitalization)
  Sender: FDA-Public Use
  Company Number: IT-ROCHE-1278995

PATIENT
  Age: 63 Year
  Sex: Female

DRUGS (4)
  1. XELODA [Suspect]
     Indication: COLON NEOPLASM
     Route: 048
     Dates: start: 20130823, end: 20130826
  2. OXALIPLATIN [Concomitant]
     Indication: COLON NEOPLASM
     Route: 042
     Dates: start: 20130823, end: 20130825
  3. DEXAMETHASONE PHOSPHATE [Concomitant]
     Indication: COLON NEOPLASM
     Route: 042
     Dates: start: 20130823, end: 20130825
  4. ONDANSETRON [Concomitant]
     Indication: PROPHYLAXIS OF NAUSEA AND VOMITING
     Route: 042
     Dates: start: 20130823, end: 20130825

REACTIONS (2)
  - Chest pain [Recovered/Resolved]
  - Band sensation [Recovered/Resolved]
